FAERS Safety Report 14192704 (Version 5)
Quarter: 2018Q2

REPORT INFORMATION
  Report Type: Report from Study
  Country: TW (occurrence: TW)
  Receive Date: 20171115
  Receipt Date: 20180403
  Transmission Date: 20180711
  Serious: Yes (Life-Threatening, Hospitalization, Other)
  Sender: FDA-Public Use
  Company Number: TW-BRISTOL-MYERS SQUIBB COMPANY-BMS-1117-000001

PATIENT
  Age: 48 Year
  Sex: Female

DRUGS (1)
  1. ABATACEPT [Suspect]
     Active Substance: ABATACEPT
     Indication: RHEUMATOID ARTHRITIS
     Dosage: 500 MG, QMO
     Route: 042
     Dates: start: 20150930, end: 20171128

REACTIONS (17)
  - Eye movement disorder [Unknown]
  - Hydrocephalus [Unknown]
  - Normocytic anaemia [Unknown]
  - Asthma [Recovering/Resolving]
  - Respiratory alkalosis [Unknown]
  - Dyspnoea [Recovering/Resolving]
  - Pyrexia [Recovering/Resolving]
  - Leukocytosis [Unknown]
  - Lung infiltration [Unknown]
  - Fall [Unknown]
  - Tonic posturing [Recovering/Resolving]
  - Wheelchair user [Unknown]
  - Acute kidney injury [Unknown]
  - Pneumonia [Unknown]
  - Aphasia [Unknown]
  - Metabolic acidosis [Unknown]
  - Seizure [Unknown]

NARRATIVE: CASE EVENT DATE: 20150930
